FAERS Safety Report 10693536 (Version 3)
Quarter: 2015Q4

REPORT INFORMATION
  Report Type: Spontaneous
  Country: CL (occurrence: CL)
  Receive Date: 20150106
  Receipt Date: 20151216
  Transmission Date: 20160304
  Serious: Yes (Other)
  Sender: FDA-Public Use
  Company Number: CL-SA-2015SA000167

PATIENT
  Age: 78 Year
  Sex: Female
  Weight: 55 kg

DRUGS (3)
  1. COAPROVEL [Suspect]
     Active Substance: HYDROCHLOROTHIAZIDE\IRBESARTAN
     Indication: HYPERTENSION
     Route: 048
     Dates: start: 2007
  2. ADROMUX [Concomitant]
     Indication: OSTEOPOROSIS PROPHYLAXIS
     Route: 048
     Dates: start: 2014
  3. OXEMET [Concomitant]
     Indication: DIABETES MELLITUS
     Route: 048

REACTIONS (9)
  - Neuropathy peripheral [Recovered/Resolved]
  - Gastritis [Recovered/Resolved]
  - Soft tissue necrosis [Recovered/Resolved]
  - Fall [Unknown]
  - Abdominal pain [Recovered/Resolved]
  - Upper limb fracture [Unknown]
  - Torticollis [Recovered/Resolved]
  - Localised infection [Recovered/Resolved]
  - Anaemia [Recovered/Resolved]

NARRATIVE: CASE EVENT DATE: 2012
